FAERS Safety Report 9158274 (Version 3)
Quarter: 2013Q2

REPORT INFORMATION
  Report Type: Spontaneous
  Country: NO (occurrence: NO)
  Receive Date: 20130312
  Receipt Date: 20130612
  Transmission Date: 20140414
  Serious: Yes (Disabling)
  Sender: FDA-Public Use
  Company Number: NO-ROCHE-1200991

PATIENT
  Sex: Female

DRUGS (9)
  1. HERCEPTIN [Suspect]
     Indication: BREAST CANCER
     Dosage: FOLLOWED BY 426 MG EVERY 3RD WEEK
     Route: 065
  2. HERCEPTIN [Suspect]
     Route: 065
  3. EPIRUBICIN [Concomitant]
     Route: 065
  4. 5-FU [Concomitant]
     Route: 065
  5. CYCLOPHOSPHAMIDE [Concomitant]
     Route: 065
  6. TAXOL [Concomitant]
     Route: 065
  7. EMEND [Concomitant]
  8. ALOXI [Concomitant]
  9. TEVAGRASTIM [Concomitant]

REACTIONS (2)
  - Hearing impaired [Unknown]
  - Weight decreased [Unknown]
